FAERS Safety Report 20177641 (Version 2)
Quarter: 2021Q4

REPORT INFORMATION
  Report Type: Spontaneous
  Country: US (occurrence: US)
  Receive Date: 20211213
  Receipt Date: 20211227
  Transmission Date: 20220304
  Serious: Yes (Other)
  Sender: FDA-Public Use
  Company Number: US-ALLERGAN-2141690US

PATIENT
  Sex: Male

DRUGS (5)
  1. LEXAPRO [Suspect]
     Active Substance: ESCITALOPRAM OXALATE
     Indication: Major depression
     Dosage: UNK
     Dates: start: 2007
  2. LEXAPRO [Suspect]
     Active Substance: ESCITALOPRAM OXALATE
     Indication: Bipolar II disorder
  3. LITHIUM [Concomitant]
     Active Substance: LITHIUM
     Indication: Bipolar II disorder
     Dosage: UNK
     Dates: start: 2007
  4. ENTRESTO [Concomitant]
     Active Substance: SACUBITRIL\VALSARTAN
     Indication: Cardiac disorder
  5. ELIQUIS [Concomitant]
     Active Substance: APIXABAN
     Indication: Anticoagulant therapy

REACTIONS (18)
  - Cardiac pacemaker insertion [Not Recovered/Not Resolved]
  - Implantable defibrillator insertion [Unknown]
  - Knee arthroplasty [Unknown]
  - Cardiac failure [Unknown]
  - Amyloidosis [Not Recovered/Not Resolved]
  - Muscle contractions involuntary [Unknown]
  - Hyperreflexia [Unknown]
  - Anxiety [Not Recovered/Not Resolved]
  - Depression [Not Recovered/Not Resolved]
  - Off label use [Unknown]
  - Tachycardia [Unknown]
  - Hallucination [Unknown]
  - Dizziness [Unknown]
  - Muscle rigidity [Unknown]
  - Agitation [Unknown]
  - Nausea [Unknown]
  - Vomiting [Unknown]
  - Tremor [Unknown]

NARRATIVE: CASE EVENT DATE: 20160101
